FAERS Safety Report 10289913 (Version 1)
Quarter: 2014Q3

REPORT INFORMATION
  Report Type: Spontaneous
  Country: US (occurrence: US)
  Receive Date: 20140710
  Receipt Date: 20140710
  Transmission Date: 20150326
  Serious: No
  Sender: FDA-Public Use
  Company Number: US-BAYER-2014-103449

PATIENT
  Age: 47 Year
  Sex: Female

DRUGS (1)
  1. CLIMARA [Suspect]
     Active Substance: ESTRADIOL
     Route: 062

REACTIONS (13)
  - Abdominal pain [None]
  - Weight increased [None]
  - Constipation [None]
  - Skin disorder [None]
  - Fungal infection [None]
  - Dry skin [None]
  - Bladder pain [None]
  - Drug ineffective [None]
  - Pelvic pain [None]
  - Fatigue [None]
  - Dysuria [None]
  - Urethral pain [None]
  - Back pain [None]
